FAERS Safety Report 9474948 (Version 5)
Quarter: 2015Q1

REPORT INFORMATION
  Report Type: Report from Study
  Country: GB (occurrence: GB)
  Receive Date: 20130824
  Receipt Date: 20150212
  Transmission Date: 20150721
  Serious: Yes (Death, Life-Threatening, Hospitalization, Other)
  Sender: FDA-Public Use
  Company Number: GB-ROCHE-1264451

PATIENT
  Age: 58 Year
  Sex: Male

DRUGS (4)
  1. CISPLATIN. [Suspect]
     Active Substance: CISPLATIN
     Indication: GASTRIC CANCER
     Dosage: MOST RECENT DOSE 132 MG ON 20/MAR/2013
     Route: 042
     Dates: start: 20130206
  2. EPIRUBICIN [Suspect]
     Active Substance: EPIRUBICIN
     Indication: GASTRIC CANCER
     Dosage: MOST RECENT DOSE 110 MG ON 20/MAR/2013
     Route: 042
     Dates: start: 20130206
  3. CAPECITABINE. [Suspect]
     Active Substance: CAPECITABINE
     Indication: GASTRIC CANCER
     Dosage: MOST RECENT DOSE 1800 MG ON 09/APR/2013
     Route: 048
     Dates: start: 20130206
  4. BEVACIZUMAB [Suspect]
     Active Substance: BEVACIZUMAB
     Indication: GASTRIC CANCER
     Dosage: MOST RECENT DOSE 870 MG ON 20/MAR/2013
     Route: 042
     Dates: start: 20130206

REACTIONS (8)
  - Sinus tachycardia [Recovered/Resolved]
  - Anastomotic leak [Unknown]
  - Haematemesis [Fatal]
  - Oesophageal haemorrhage [Recovered/Resolved with Sequelae]
  - Gastrointestinal fistula [Recovered/Resolved with Sequelae]
  - Gastric haemorrhage [Recovered/Resolved with Sequelae]
  - Gastrointestinal disorder [Recovered/Resolved]
  - Infection [Recovered/Resolved]

NARRATIVE: CASE EVENT DATE: 20130526
